FAERS Safety Report 11164113 (Version 1)
Quarter: 2015Q2

REPORT INFORMATION
  Report Type: Spontaneous
  Country: US (occurrence: US)
  Receive Date: 20150604
  Receipt Date: 20150604
  Transmission Date: 20150821
  Serious: No
  Sender: FDA-Public Use
  Company Number: US-TARO-2014TAR00635

PATIENT
  Age: 2 Year
  Sex: Male
  Weight: 10.88 kg

DRUGS (2)
  1. FEVERALL [Suspect]
     Active Substance: ACETAMINOPHEN
     Indication: PYREXIA
     Dosage: 80 MG, AS NEEDED
     Route: 054
     Dates: start: 20141215, end: 20141215
  2. FEVERALL [Suspect]
     Active Substance: ACETAMINOPHEN
     Indication: DIARRHOEA

REACTIONS (1)
  - Drug ineffective [Recovered/Resolved]

NARRATIVE: CASE EVENT DATE: 20141215
